FAERS Safety Report 13716760 (Version 1)
Quarter: 2017Q3

REPORT INFORMATION
  Report Type: Spontaneous
  Country: US (occurrence: US)
  Receive Date: 20170705
  Receipt Date: 20170705
  Transmission Date: 20171127
  Serious: No
  Sender: FDA-Public Use
  Company Number: US-TEVA-721628ACC

PATIENT
  Age: 36 Year
  Sex: Female
  Weight: 59 kg

DRUGS (3)
  1. ALPRAZOLAM. [Concomitant]
     Active Substance: ALPRAZOLAM
     Dosage: 0.25
  2. BUPROPION XL 150 (MYLAN) [Concomitant]
  3. BUPROPION EXTENDED RELEASE XL [Suspect]
     Active Substance: BUPROPION
     Dates: start: 20161115, end: 20161206

REACTIONS (7)
  - Anxiety [Recovered/Resolved]
  - Anger [Recovered/Resolved]
  - Depression [Recovered/Resolved]
  - Drug ineffective [Unknown]
  - Tremor [Unknown]
  - Crying [Unknown]
  - Panic attack [Unknown]

NARRATIVE: CASE EVENT DATE: 201612
